FAERS Safety Report 10665495 (Version 1)
Quarter: 2014Q4

REPORT INFORMATION
  Report Type: Spontaneous
  Country: FR (occurrence: FR)
  Receive Date: 20141219
  Receipt Date: 20141219
  Transmission Date: 20150529
  Serious: Yes (Hospitalization)
  Sender: FDA-Public Use
  Company Number: FR-BAYER-2014-183971

PATIENT
  Age: 38 Year
  Sex: Female

DRUGS (1)
  1. MIRENA [Suspect]
     Active Substance: LEVONORGESTREL
     Dosage: UNK
     Dates: start: 201307

REACTIONS (6)
  - Dyspareunia [None]
  - Pain [None]
  - Infective spondylitis [None]
  - Ovarian germ cell teratoma benign [None]
  - Gait disturbance [None]
  - Paralysis [None]
